FAERS Safety Report 20187337 (Version 1)
Quarter: 2021Q4

REPORT INFORMATION
  Report Type: Spontaneous
  Country: US (occurrence: None)
  Receive Date: 20211214
  Receipt Date: 20211214
  Transmission Date: 20220303
  Serious: Yes (Death, Hospitalization)
  Sender: FDA-Public Use
  Company Number: None

PATIENT
  Age: 58 Year
  Sex: Male
  Weight: 151 kg

DRUGS (8)
  1. ELIQUIS [Suspect]
     Active Substance: APIXABAN
     Indication: Atrial fibrillation
  2. LISINOPRIL [Concomitant]
     Active Substance: LISINOPRIL
  3. JANUVIA [Concomitant]
     Active Substance: SITAGLIPTIN PHOSPHATE
  4. LAMISIL [Concomitant]
     Active Substance: TERBINAFINE HYDROCHLORIDE
  5. INSULIN LISPRO [Concomitant]
     Active Substance: INSULIN LISPRO
  6. LYRICA [Concomitant]
     Active Substance: PREGABALIN
  7. METOPROLOL TARTRATE [Concomitant]
     Active Substance: METOPROLOL TARTRATE
  8. LANTUS SOLOSTAR [Concomitant]
     Active Substance: INSULIN GLARGINE

REACTIONS (11)
  - Haemorrhage intracranial [None]
  - Headache [None]
  - Mental status changes [None]
  - Pneumonia [None]
  - Facial paralysis [None]
  - Syncope [None]
  - Brain stem haemorrhage [None]
  - Diverticulum [None]
  - Hypoxia [None]
  - Hypercapnia [None]
  - Sleep apnoea syndrome [None]

NARRATIVE: CASE EVENT DATE: 20211109
